FAERS Safety Report 22242826 (Version 2)
Quarter: 2023Q2

REPORT INFORMATION
  Report Type: Spontaneous
  Country: US (occurrence: US)
  Receive Date: 20230424
  Receipt Date: 20230511
  Transmission Date: 20230721
  Serious: No
  Sender: FDA-Public Use
  Company Number: US-SA-SAC20230419000509

PATIENT
  Sex: Male
  Weight: 70.295 kg

DRUGS (7)
  1. DUPIXENT [Suspect]
     Active Substance: DUPILUMAB
     Indication: Dermatitis atopic
     Dosage: 300 MG, QOW
     Route: 058
  2. NEXIUM I.V. [Concomitant]
     Active Substance: ESOMEPRAZOLE SODIUM
  3. ALPRAZOLAM [Concomitant]
     Active Substance: ALPRAZOLAM
  4. CANDESARTAN CILEXETIL [Concomitant]
     Active Substance: CANDESARTAN CILEXETIL
  5. CALCIUM [Concomitant]
     Active Substance: CALCIUM
  6. CLONIDINE [Concomitant]
     Active Substance: CLONIDINE
     Dosage: 0.3 MG, QW; ATOPIC DERMATITIS
     Route: 062
  7. VITAMIN D3 [Concomitant]
     Active Substance: CHOLECALCIFEROL

REACTIONS (13)
  - Pain in extremity [Unknown]
  - Gait disturbance [Recovering/Resolving]
  - Fall [Unknown]
  - Joint injury [Unknown]
  - Musculoskeletal stiffness [Unknown]
  - Dry mouth [Unknown]
  - Peripheral swelling [Unknown]
  - Eye discharge [Unknown]
  - Periorbital swelling [Unknown]
  - Burning sensation [Unknown]
  - Vision blurred [Unknown]
  - Dizziness [Unknown]
  - Eye pruritus [Unknown]
